FAERS Safety Report 9539966 (Version 2)
Quarter: 2013Q4

REPORT INFORMATION
  Report Type: Spontaneous
  Country: US (occurrence: US)
  Receive Date: 20130920
  Receipt Date: 20131001
  Transmission Date: 20140711
  Serious: Yes (Hospitalization, Disabling, Other)
  Sender: FDA-Public Use
  Company Number: US-TARO-2013P1019386

PATIENT
  Age: 38 Year
  Sex: Male
  Weight: 129.28 kg

DRUGS (1)
  1. CARBAMAZEPINE TABLETS USP 200 MG [Suspect]
     Dates: start: 1995

REACTIONS (12)
  - Local swelling [Unknown]
  - Vein disorder [Unknown]
  - Pigmentation disorder [Unknown]
  - Fluid retention [Unknown]
  - Hypertension [Unknown]
  - Haemorrhagic stroke [Unknown]
  - Cardiac disorder [Unknown]
  - Blood sodium decreased [Unknown]
  - Stevens-Johnson syndrome [Unknown]
  - Blood pressure decreased [Unknown]
  - Skin infection [Unknown]
  - Weight increased [Unknown]
